FAERS Safety Report 18004976 (Version 1)
Quarter: 2020Q3

REPORT INFORMATION
  Report Type: Spontaneous
  Country: US (occurrence: US)
  Receive Date: 20200709
  Receipt Date: 20200709
  Transmission Date: 20201103
  Serious: Yes (Other)
  Sender: FDA-Public Use
  Company Number: None

PATIENT
  Age: 72 Year
  Sex: Male
  Weight: 85 kg

DRUGS (12)
  1. REMDESIVIR. [Suspect]
     Active Substance: REMDESIVIR
     Indication: COVID-19
     Route: 040
     Dates: start: 20200703, end: 20200706
  2. AZITHROMYCIN 500MG DAILY [Concomitant]
     Active Substance: AZITHROMYCIN
     Dates: start: 20200630, end: 20200706
  3. CEFTRIAXONE 2G IV DAILY [Concomitant]
     Dates: start: 20200630, end: 20200706
  4. ENOXAPARIN 40MG SUBCUT DAILY [Concomitant]
     Dates: start: 20200630, end: 20200706
  5. ZINC SULFATE 220MG ORAL DAILY [Concomitant]
     Dates: start: 20200701, end: 20200706
  6. ACORBIC ACID 500MG ORAL DAILY [Concomitant]
     Dates: start: 20200701, end: 20200706
  7. HYDROCHLOROTHIAZINE 12.5MG ORAL DAILY [Concomitant]
     Dates: start: 20200704, end: 20200706
  8. LEVOTHYROXINE 137MCG ORAL DAILY [Concomitant]
     Dates: start: 20200705, end: 20200706
  9. VALSARTAN 80MG ORAL DAILY [Concomitant]
     Dates: start: 20200704, end: 20200706
  10. CLONAZEPAM 0.5MG ORAL BID [Concomitant]
     Dates: start: 20200704, end: 20200706
  11. DEXAMETHASONE 6MG IV DAILY [Concomitant]
     Dates: start: 20200701, end: 20200706
  12. METHOCARBAMOL 750MG ORAL QID [Concomitant]
     Dates: start: 20200701, end: 20200706

REACTIONS (1)
  - Respiratory failure [None]

NARRATIVE: CASE EVENT DATE: 20200706
